FAERS Safety Report 9931622 (Version 2)
Quarter: 2014Q1

REPORT INFORMATION
  Report Type: Spontaneous
  Country: US (occurrence: US)
  Receive Date: 20140228
  Receipt Date: 20140228
  Transmission Date: 20141002
  Serious: Yes (Other)
  Sender: FDA-Public Use
  Company Number: US-GE HEALTHCARE MEDICAL DIAGNOSTICS-OSCN-PR-0804S-0183

PATIENT
  Age: 27 Year
  Sex: Female

DRUGS (3)
  1. OMNISCAN [Suspect]
     Indication: ASCITES
     Route: 042
     Dates: start: 20050830, end: 20050830
  2. OMNISCAN [Suspect]
     Indication: PANCREAS TRANSPLANT REJECTION
     Route: 042
     Dates: start: 20051021, end: 20051021
  3. OMNISCAN [Suspect]
     Route: 042
     Dates: start: 20060315, end: 20060315

REACTIONS (1)
  - Nephrogenic systemic fibrosis [Not Recovered/Not Resolved]
